FAERS Safety Report 9331105 (Version 1)
Quarter: 2013Q2

REPORT INFORMATION
  Report Type: Spontaneous
  Country: US (occurrence: US)
  Receive Date: 20130605
  Receipt Date: 20130605
  Transmission Date: 20140414
  Serious: No
  Sender: FDA-Public Use
  Company Number: US-BAYER-2013-068811

PATIENT
  Age: 75 Year
  Sex: Male
  Weight: 87.08 kg

DRUGS (8)
  1. ALEVE TABLET [Suspect]
     Indication: ARTHRITIS
     Dosage: 2 DF, QD
     Route: 048
  2. OMEPRAZOLE [Concomitant]
  3. METOPROLOL [Concomitant]
  4. TERAZOSIN [Concomitant]
  5. LEVOTHYROXINE [Concomitant]
  6. METFORMIN HCL [Concomitant]
  7. LISINOPRIL [Concomitant]
  8. SIMVASTATIN [Concomitant]

REACTIONS (1)
  - Incorrect drug administration duration [None]
